FAERS Safety Report 9144316 (Version 1)
Quarter: 2013Q1

REPORT INFORMATION
  Report Type: Spontaneous
  Country: FR (occurrence: FR)
  Receive Date: 20130306
  Receipt Date: 20130306
  Transmission Date: 20140127
  Serious: Yes (Hospitalization)
  Sender: FDA-Public Use
  Company Number: FR-TEVA-389339ISR

PATIENT
  Age: 75 Year
  Sex: Female

DRUGS (11)
  1. ESTREVA [Suspect]
     Route: 003
  2. MEDIATOR [Suspect]
     Indication: OVERWEIGHT
     Route: 048
     Dates: start: 1994
  3. MEDIATOR [Suspect]
     Route: 048
     Dates: start: 2001, end: 2003
  4. MEDIATOR [Suspect]
     Route: 048
     Dates: start: 2007, end: 2008
  5. ARCOXIA [Suspect]
     Dosage: 1 DOSAGE FORMS DAILY;
     Route: 048
     Dates: end: 20110510
  6. AVLOCARDYL [Suspect]
     Dosage: 60 MILLIGRAM DAILY;
     Route: 048
  7. LEVOTHYROX [Suspect]
     Dosage: 80 MICROGRAM DAILY;
     Route: 048
  8. UTROGESTAN [Suspect]
     Route: 048
  9. FLEXEA [Concomitant]
  10. IXPRIM [Concomitant]
  11. BIPROFENID [Concomitant]
     Dates: start: 20110510

REACTIONS (1)
  - Pulmonary arterial hypertension [Not Recovered/Not Resolved]
